FAERS Safety Report 9665865 (Version 1)
Quarter: 2013Q4

REPORT INFORMATION
  Report Type: Spontaneous
  Country: US (occurrence: None)
  Receive Date: 20131031
  Receipt Date: 20131031
  Transmission Date: 20140711
  Serious: Yes (Disabling)
  Sender: FDA-Public Use
  Company Number: None

PATIENT
  Age: 55 Year
  Sex: Female
  Weight: 83.92 kg

DRUGS (5)
  1. LEVAQUIN [Suspect]
     Indication: COLITIS
     Dosage: EVERY DAY X 10 DAYS  IV INFUSION?5/18?6/6
     Route: 042
  2. LEVAQUIN [Suspect]
     Indication: INVESTIGATION
     Dosage: EVERY DAY X 10 DAYS  IV INFUSION?5/18?6/6
     Route: 042
  3. CENTRUM [Concomitant]
  4. CLARITIN [Concomitant]
  5. BABY ASPIRIN [Concomitant]

REACTIONS (3)
  - Pain in extremity [None]
  - Pain in extremity [None]
  - Pain in extremity [None]
